FAERS Safety Report 7892658-X (Version None)
Quarter: 2011Q4

REPORT INFORMATION
  Report Type: 
  Country: None (occurrence: None)
  Receive Date: 20111102
  Receipt Date: 20111024
  Transmission Date: 20120403
  Serious: Yes (Hospitalization)
  Sender: FDA-Public Use
  Company Number: 125420

PATIENT
  Age: 53 Year
  Sex: Male

DRUGS (1)
  1. CERUBIDINE [Suspect]
     Indication: ACUTE LEUKAEMIA
     Dosage: 60MG/M2,1X/DAY,IV
     Route: 042
     Dates: start: 20100604, end: 20100606

REACTIONS (10)
  - PARAESTHESIA [None]
  - PARAESTHESIA ORAL [None]
  - SCIATICA [None]
  - PERIPHERAL SENSORY NEUROPATHY [None]
  - MALNUTRITION [None]
  - CRANIAL NERVE DISORDER [None]
  - VIITH NERVE PARALYSIS [None]
  - PNEUMONIA FUNGAL [None]
  - LYME DISEASE [None]
  - THROMBOCYTOPENIA [None]
